FAERS Safety Report 8792286 (Version 1)
Quarter: 2012Q4

REPORT INFORMATION
  Report Type: 
  Country: US (occurrence: US)
  Receive Date: 20120918
  Receipt Date: 20120918
  Transmission Date: 20130627
  Serious: No
  Sender: FDA-Public Use
  Company Number: US-PFIZER INC-2012226927

PATIENT
  Sex: Male

DRUGS (1)
  1. INLYTA [Suspect]
     Indication: METASTATIC RENAL CELL CARCINOMA
     Dosage: UNK
     Route: 048

REACTIONS (7)
  - Disease progression [Unknown]
  - Renal cell carcinoma [Unknown]
  - Headache [Unknown]
  - Dry mouth [Unknown]
  - Aphasia [Unknown]
  - Fatigue [Unknown]
  - Asthenia [Unknown]
